FAERS Safety Report 8596662-8 (Version None)
Quarter: 2012Q3

REPORT INFORMATION
  Report Type: 
  Country: None (occurrence: None)
  Receive Date: 20120815
  Receipt Date: 20120809
  Transmission Date: 20120928
  Serious: Yes (Hospitalization)
  Sender: FDA-Public Use
  Company Number: US-BAXTER-2012BAX010645

PATIENT
  Sex: Female

DRUGS (2)
  1. SYNTHROID [Concomitant]
  2. ARALAST NP [Suspect]
     Indication: ALPHA-1 ANTI-TRYPSIN DEFICIENCY
     Route: 042

REACTIONS (7)
  - DEPRESSION [None]
  - THINKING ABNORMAL [None]
  - MEMORY IMPAIRMENT [None]
  - WEIGHT INCREASED [None]
  - PAIN [None]
  - OSTEOARTHRITIS [None]
  - THYROID FUNCTION TEST ABNORMAL [None]
